FAERS Safety Report 9767764 (Version 1)
Quarter: 2013Q3

REPORT INFORMATION
  Report Type: Spontaneous
  Country: US (occurrence: None)
  Receive Date: 20130903
  Receipt Date: 20130903
  Transmission Date: 20140515
  Serious: Yes (Other)
  Sender: FDA-Public Use
  Company Number: 121723

PATIENT
  Age: 58 Year
  Sex: 0

DRUGS (1)
  1. DAUNORUBICIN HCL INJ. 20MG/4ML - BEDFORD LABS, INC. [Suspect]
     Dates: start: 20110620, end: 20110630

REACTIONS (4)
  - Decreased appetite [None]
  - Diarrhoea [None]
  - Nausea [None]
  - Vomiting [None]
